FAERS Safety Report 15409785 (Version 1)
Quarter: 2018Q3

REPORT INFORMATION
  Report Type: Spontaneous
  Country: JP (occurrence: JP)
  Receive Date: 20180920
  Receipt Date: 20180920
  Transmission Date: 20181010
  Serious: Yes (Hospitalization)
  Sender: FDA-Public Use
  Company Number: PHHY2018JP099672

PATIENT
  Age: 55 Year
  Sex: Female

DRUGS (2)
  1. TOPOTECAN [Suspect]
     Active Substance: TOPOTECAN HYDROCHLORIDE
     Indication: OVARIAN CLEAR CELL CARCINOMA
     Dosage: 1.25 MG/M2, UNK
     Route: 065
  2. BEVACIZUMAB. [Interacting]
     Active Substance: BEVACIZUMAB
     Indication: OVARIAN CLEAR CELL CARCINOMA
     Dosage: 15 MG/KG, UNK
     Route: 065

REACTIONS (3)
  - Drug interaction [Unknown]
  - Large intestine perforation [Recovered/Resolved]
  - Abdominal pain lower [Unknown]
